FAERS Safety Report 7333026-9 (Version None)
Quarter: 2011Q1

REPORT INFORMATION
  Report Type: 
  Country: None (occurrence: None)
  Receive Date: 20110304
  Receipt Date: 20110207
  Transmission Date: 20110831
  Serious: No
  Sender: FDA-Public Use
  Company Number: US-B.I. PHARMACEUTICALS,INC./RIDGEFIELD-2011-BP-02036BP

PATIENT
  Age: 68 Year
  Sex: Female

DRUGS (4)
  1. LIPITOR [Concomitant]
     Indication: BLOOD CHOLESTEROL INCREASED
     Route: 048
  2. PRADAXA [Suspect]
     Indication: DEEP VEIN THROMBOSIS
     Dosage: 300 MG
     Route: 048
     Dates: start: 20101201
  3. NEXIUM [Concomitant]
     Indication: ABDOMINAL DISCOMFORT
     Route: 048
  4. LISINOPRIL [Concomitant]
     Indication: HYPERTENSION
     Route: 048

REACTIONS (5)
  - HYPOAESTHESIA [None]
  - PAIN IN EXTREMITY [None]
  - BACK PAIN [None]
  - GROIN PAIN [None]
  - ARTHRALGIA [None]
